FAERS Safety Report 17697369 (Version 1)
Quarter: 2020Q2

REPORT INFORMATION
  Report Type: Spontaneous
  Country: US (occurrence: US)
  Receive Date: 20200423
  Receipt Date: 20200423
  Transmission Date: 20200714
  Serious: No
  Sender: FDA-Public Use
  Company Number: US-ELI_LILLY_AND_COMPANY-US202003012553

PATIENT
  Sex: Female

DRUGS (5)
  1. TRULICITY [Suspect]
     Active Substance: DULAGLUTIDE
     Dosage: 1.5 MG, UP TO 8 TIMES PER DAY
     Route: 065
  2. NOVOLOG [Concomitant]
     Active Substance: INSULIN ASPART
     Indication: TYPE 2 DIABETES MELLITUS
     Dosage: 2-6 UNITS EVERY MEAL PER SLIDING SCALE
  3. METFORMIN [Concomitant]
     Active Substance: METFORMIN HYDROCHLORIDE
     Indication: TYPE 2 DIABETES MELLITUS
     Dosage: 2000 MG, DAILY
  4. TRULICITY [Suspect]
     Active Substance: DULAGLUTIDE
     Indication: TYPE 2 DIABETES MELLITUS
     Dosage: 1.5 MG, UNKNOWN
     Route: 065
     Dates: start: 2019
  5. TOUJEO [Concomitant]
     Active Substance: INSULIN GLARGINE
     Indication: TYPE 2 DIABETES MELLITUS
     Dosage: 30 INTERNATIONAL UNIT, DAILY (EVENING)

REACTIONS (4)
  - Pancreatic disorder [Not Recovered/Not Resolved]
  - Glycosylated haemoglobin increased [Unknown]
  - Inappropriate schedule of product administration [Not Recovered/Not Resolved]
  - Overdose [Not Recovered/Not Resolved]

NARRATIVE: CASE EVENT DATE: 2019
